FAERS Safety Report 14727565 (Version 3)
Quarter: 2019Q3

REPORT INFORMATION
  Report Type: Spontaneous
  Country: US (occurrence: US)
  Receive Date: 20180406
  Receipt Date: 20190726
  Transmission Date: 20191004
  Serious: Yes (Other)
  Sender: FDA-Public Use
  Company Number: US-ASTRAZENECA-2018SE40888

PATIENT
  Age: 638 Month
  Sex: Male
  Weight: 88.5 kg

DRUGS (24)
  1. NEXIUM [Suspect]
     Active Substance: ESOMEPRAZOLE MAGNESIUM
     Route: 048
     Dates: start: 198909, end: 201712
  2. NEXIUM 24HR [Suspect]
     Active Substance: ESOMEPRAZOLE MAGNESIUM
     Route: 048
     Dates: start: 198909, end: 201712
  3. ALLOPURINOL. [Concomitant]
     Active Substance: ALLOPURINOL
     Indication: GOUT
     Dates: start: 1995
  4. CALCITRIOL. [Concomitant]
     Active Substance: CALCITRIOL
  5. SODIUM BICARBONATE. [Concomitant]
     Active Substance: SODIUM BICARBONATE
  6. PRILOSEC [Suspect]
     Active Substance: OMEPRAZOLE MAGNESIUM
     Route: 048
  7. PRILOSEC OTC [Suspect]
     Active Substance: OMEPRAZOLE MAGNESIUM
     Indication: GASTROOESOPHAGEAL REFLUX DISEASE
     Route: 048
  8. PREVACID [Suspect]
     Active Substance: LANSOPRAZOLE
     Route: 065
     Dates: start: 198909, end: 201712
  9. NEXIUM 24HR [Suspect]
     Active Substance: ESOMEPRAZOLE MAGNESIUM
     Route: 048
  10. AMLODIPINE [Concomitant]
     Active Substance: AMLODIPINE BESYLATE
  11. PRILOSEC OTC [Suspect]
     Active Substance: OMEPRAZOLE MAGNESIUM
     Indication: GASTROOESOPHAGEAL REFLUX DISEASE
     Route: 048
     Dates: start: 200601, end: 201412
  12. PREVACID [Suspect]
     Active Substance: LANSOPRAZOLE
     Route: 065
  13. PROTONIX [Suspect]
     Active Substance: PANTOPRAZOLE SODIUM
     Route: 065
     Dates: start: 198909, end: 201712
  14. PRILOSEC OTC [Suspect]
     Active Substance: OMEPRAZOLE MAGNESIUM
     Indication: GASTROOESOPHAGEAL REFLUX DISEASE
     Route: 048
     Dates: start: 198909, end: 201712
  15. PREVACID 24 HR [Suspect]
     Active Substance: LANSOPRAZOLE
     Route: 065
  16. HYDRALAZINE [Concomitant]
     Active Substance: HYDRALAZINE HYDROCHLORIDE
  17. MORPHINE [Concomitant]
     Active Substance: MORPHINE
  18. FUROSEMIDE. [Concomitant]
     Active Substance: FUROSEMIDE
     Indication: DIABETES MELLITUS
  19. PRILOSEC [Suspect]
     Active Substance: OMEPRAZOLE MAGNESIUM
     Route: 048
     Dates: start: 198909, end: 201712
  20. PRILOSEC OTC [Suspect]
     Active Substance: OMEPRAZOLE MAGNESIUM
     Indication: GASTROOESOPHAGEAL REFLUX DISEASE
     Route: 048
     Dates: start: 2006, end: 2012
  21. PREVACID 24 HR [Suspect]
     Active Substance: LANSOPRAZOLE
     Route: 065
     Dates: start: 198909, end: 201712
  22. DEXILANT [Suspect]
     Active Substance: DEXLANSOPRAZOLE
     Route: 065
     Dates: start: 198909, end: 201712
  23. LORTAB [Concomitant]
     Active Substance: ACETAMINOPHEN\HYDROCODONE BITARTRATE
  24. VITAMIN D [Concomitant]
     Active Substance: VITAMIN D NOS
     Indication: MINERAL SUPPLEMENTATION
     Dates: start: 2017

REACTIONS (9)
  - Nephrogenic anaemia [Unknown]
  - Chronic kidney disease [Recovered/Resolved]
  - End stage renal disease [Unknown]
  - Metabolic acidosis [Unknown]
  - Hyperphosphataemia [Unknown]
  - Acute kidney injury [Unknown]
  - Renal failure [Recovered/Resolved]
  - Hyperkalaemia [Unknown]
  - Hyperparathyroidism secondary [Unknown]

NARRATIVE: CASE EVENT DATE: 200707
